FAERS Safety Report 4609097-7 (Version None)
Quarter: 2005Q2

REPORT INFORMATION
  Report Type: 
  Country: None (occurrence: None)
  Receive Date: 20050301
  Receipt Date: 20041110
  Transmission Date: 20051028
  Serious: Yes (Disabling, Other)
  Sender: FDA-Public Use
  Company Number: 20041100486

PATIENT
  Age: 30 Year
  Sex: Female

DRUGS (2)
  1. REGLAN [Suspect]
     Indication: DIAGNOSTIC PROCEDURE
     Dates: start: 20031202, end: 20031202
  2. PAXIL [Concomitant]

REACTIONS (2)
  - DYSTONIA [None]
  - MUSCLE TWITCHING [None]
